FAERS Safety Report 8010951-7 (Version None)
Quarter: 2011Q4

REPORT INFORMATION
  Report Type: 
  Country: None (occurrence: None)
  Receive Date: 20111228
  Receipt Date: 20111222
  Transmission Date: 20120403
  Serious: Yes (Other)
  Sender: FDA-Public Use
  Company Number: US-PFIZER INC-2011297237

PATIENT
  Sex: Female

DRUGS (1)
  1. SUTENT [Suspect]
     Dosage: 50 MG, DAILY FOR 28 DAYS EVERY 42 DAYS
     Dates: start: 20111202

REACTIONS (8)
  - HOT FLUSH [None]
  - URINARY TRACT INFECTION [None]
  - GLOSSODYNIA [None]
  - HYPERTENSION [None]
  - RHINORRHOEA [None]
  - TINNITUS [None]
  - DYSGEUSIA [None]
  - HEADACHE [None]
